FAERS Safety Report 17213978 (Version 2)
Quarter: 2020Q1

REPORT INFORMATION
  Report Type: Spontaneous
  Country: US (occurrence: US)
  Receive Date: 20191230
  Receipt Date: 20200103
  Transmission Date: 20200409
  Serious: No
  Sender: FDA-Public Use
  Company Number: US-PFIZER INC-2019089707

PATIENT
  Age: 51 Year
  Sex: Female
  Weight: 55.34 kg

DRUGS (5)
  1. DILANTIN [Suspect]
     Active Substance: PHENYTOIN
     Dosage: 300 MG, 1X/DAY, (100MG; 3 CAPSULES ONCE A DAY, BY MOUTH)
     Route: 048
  2. LISINOPRIL. [Concomitant]
     Active Substance: LISINOPRIL
     Indication: HYPERTENSION
     Dosage: 10 MG, 1X/DAY
     Route: 048
  3. DILANTIN [Suspect]
     Active Substance: PHENYTOIN
     Indication: SEIZURE
     Dosage: 300 MG, 1X/DAY (SIG: 3 CAP AT BEDTIME/AFTER EAT DINNER BEFORE BED A DAY)
     Route: 048
     Dates: start: 2014
  4. PHENYTOIN. [Concomitant]
     Active Substance: PHENYTOIN
     Indication: SEIZURE
     Dosage: 300 MG, 1X/DAY [AFTER EAT DINNER/BEFORE BED A DAY]
  5. FAMOTIDINE. [Concomitant]
     Active Substance: FAMOTIDINE
     Indication: GASTROOESOPHAGEAL REFLUX DISEASE
     Dosage: 20 MG, 2X/DAY
     Route: 048

REACTIONS (3)
  - Erythema [Recovering/Resolving]
  - Stress [Not Recovered/Not Resolved]
  - Blood pressure increased [Unknown]

NARRATIVE: CASE EVENT DATE: 201910
